FAERS Safety Report 15632008 (Version 1)
Quarter: 2018Q4

REPORT INFORMATION
  Report Type: Spontaneous
  Country: US (occurrence: US)
  Receive Date: 20181119
  Receipt Date: 20181119
  Transmission Date: 20190205
  Serious: Yes (Hospitalization)
  Sender: FDA-Public Use
  Company Number: US-PFIZER INC-2017230636

PATIENT
  Age: 82 Year
  Sex: Female
  Weight: 64.86 kg

DRUGS (6)
  1. LYRICA [Suspect]
     Active Substance: PREGABALIN
     Indication: NEUROPATHY PERIPHERAL
  2. NORTRIPTYLINE [Concomitant]
     Active Substance: NORTRIPTYLINE
     Dosage: 50 MG, 1X/DAY (QHS, TWO CAPSULES BEFORE BED)
  3. LYRICA [Suspect]
     Active Substance: PREGABALIN
     Indication: FALL
  4. PAMELOR [Concomitant]
     Active Substance: NORTRIPTYLINE HYDROCHLORIDE
     Dosage: UNK
  5. LYRICA [Suspect]
     Active Substance: PREGABALIN
     Indication: POLYNEUROPATHY
     Dosage: 75 MG, 3X/DAY
     Route: 048
  6. ICAPS PLUS [ASCORBIC ACID;COPPER;CYSTEINE;MANGANESE;RETINOL;SELENIUM;T [Concomitant]
     Dosage: UNK
     Dates: end: 20180522

REACTIONS (3)
  - Pneumonia [Unknown]
  - Blood pressure increased [Unknown]
  - Pulmonary oedema [Unknown]

NARRATIVE: CASE EVENT DATE: 20181008
